FAERS Safety Report 6449395-8 (Version None)
Quarter: 2009Q4

REPORT INFORMATION
  Report Type: 
  Country: None (occurrence: None)
  Receive Date: 20091120
  Receipt Date: 20091113
  Transmission Date: 20100525
  Serious: Yes (Life-Threatening, Hospitalization)
  Sender: FDA-Public Use
  Company Number: US-JNJFOC-20091104759

PATIENT
  Sex: Male
  Weight: 83.92 kg

DRUGS (3)
  1. RISPERDAL [Suspect]
     Dosage: EVERY EVENING
     Route: 048
     Dates: start: 20080903
  2. RISPERDAL [Suspect]
     Route: 048
     Dates: start: 20080903
  3. RISPERDAL [Suspect]
     Indication: SCHIZOPHRENIA
     Route: 048
     Dates: start: 20080903

REACTIONS (4)
  - BLOOD SODIUM DECREASED [None]
  - NEUTROPHIL COUNT INCREASED [None]
  - PSYCHOTIC DISORDER [None]
  - WHITE BLOOD CELL COUNT INCREASED [None]
